FAERS Safety Report 26091964 (Version 1)
Quarter: 2025Q4

REPORT INFORMATION
  Report Type: Report from Study
  Country: EU (occurrence: EU)
  Receive Date: 20251126
  Receipt Date: 20251126
  Transmission Date: 20260118
  Serious: Yes (Other)
  Sender: ABBVIE
  Company Number: EU-ABBVIE-6038247

PATIENT
  Age: 78 Year
  Sex: Male

DRUGS (6)
  1. FOSCARBIDOPA\FOSLEVODOPA [Suspect]
     Active Substance: FOSCARBIDOPA\FOSLEVODOPA
     Indication: Parkinson^s disease
     Dosage: CRN: 0.29 ML/H, CR: 0.34 ML/H, CRH: 0.38 ML/H, ED: 0.20 ML
     Route: 058
  2. FOSCARBIDOPA\FOSLEVODOPA [Suspect]
     Active Substance: FOSCARBIDOPA\FOSLEVODOPA
     Dosage: SD: 0.60 ML, CR: 0.34 ML/H, CRH: 0.38 ML/H, CRN: 0.24 ML/H, ED: 0.20 ML
     Route: 058
     Dates: start: 20241127
  3. FOSCARBIDOPA\FOSLEVODOPA [Suspect]
     Active Substance: FOSCARBIDOPA\FOSLEVODOPA
     Dosage: SD: 0,60ML, CRN: 0,21ML/H, CR: 0,27ML/H, CRH: 0,32ML/H, ED: 0,15ML
     Route: 058
  4. FOSCARBIDOPA\FOSLEVODOPA [Suspect]
     Active Substance: FOSCARBIDOPA\FOSLEVODOPA
     Dosage: CRN:0.28ML/H CR:0.37ML/H CRH:0.38ML/H ED:0.20ML
     Route: 058
  5. FOSCARBIDOPA\FOSLEVODOPA [Suspect]
     Active Substance: FOSCARBIDOPA\FOSLEVODOPA
     Dosage: CRN: 0.33 ML/H, CR: 0.41 ML/H, CRH: 0.43 ML/H, ED: 0.20 ML
     Route: 058
  6. FOSCARBIDOPA\FOSLEVODOPA [Suspect]
     Active Substance: FOSCARBIDOPA\FOSLEVODOPA
     Dosage: DOSAGE: CRN: 0.39 ML/H, CR: 0.42 ML/H, CRH: 0.45 ML/H, ED: 0.20 ML
     Route: 058

REACTIONS (15)
  - Macular degeneration [Not Recovered/Not Resolved]
  - Hallucination, visual [Not Recovered/Not Resolved]
  - Hyperkinesia [Recovered/Resolved]
  - On and off phenomenon [Not Recovered/Not Resolved]
  - Infusion site erythema [Recovered/Resolved]
  - Hallucination [Not Recovered/Not Resolved]
  - Dyskinesia [Recovering/Resolving]
  - Hallucination, auditory [Not Recovered/Not Resolved]
  - Hypokinesia [Not Recovered/Not Resolved]
  - Polyneuropathy [Not Recovered/Not Resolved]
  - On and off phenomenon [Recovered/Resolved]
  - Infusion site inflammation [Recovered/Resolved]
  - Weight decreased [Not Recovered/Not Resolved]
  - General physical health deterioration [Not Recovered/Not Resolved]
  - Patient dissatisfaction with treatment [Unknown]

NARRATIVE: CASE EVENT DATE: 20240101
